FAERS Safety Report 4844494-6 (Version None)
Quarter: 2005Q4

REPORT INFORMATION
  Report Type: 
  Country: None (occurrence: None)
  Receive Date: 20051203
  Receipt Date: 20040202
  Transmission Date: 20060501
  Serious: Yes (Life-Threatening, Hospitalization, Other)
  Sender: FDA-Public Use
  Company Number: PHBS2004JP01678

PATIENT
  Age: 64 Year
  Sex: Male

DRUGS (2)
  1. LAMISIL [Suspect]
     Indication: NAIL TINEA
     Dosage: 125 MG
     Route: 048
     Dates: start: 20030530, end: 20030728
  2. LAMISIL [Suspect]
     Dosage: 125 MG, QD
     Route: 048
     Dates: start: 20020501, end: 20020701

REACTIONS (4)
  - CIRCULATORY COLLAPSE [None]
  - MULTI-ORGAN FAILURE [None]
  - OCULAR HYPERAEMIA [None]
  - RHABDOMYOLYSIS [None]
